FAERS Safety Report 16960644 (Version 1)
Quarter: 2019Q4

REPORT INFORMATION
  Report Type: Spontaneous
  Country: ES (occurrence: ES)
  Receive Date: 20191025
  Receipt Date: 20191025
  Transmission Date: 20200122
  Serious: Yes (Other)
  Sender: FDA-Public Use
  Company Number: ES-ASTRAZENECA-2019SF48571

PATIENT
  Age: 6 Year
  Sex: Male
  Weight: 26 kg

DRUGS (2)
  1. MINOXIDIL (782A) [Suspect]
     Active Substance: MINOXIDIL
     Route: 048
     Dates: start: 20190703, end: 20190715
  2. OMEPRAZOLE MAGISTRAL FORMULA [Suspect]
     Active Substance: OMEPRAZOLE
     Indication: GASTROOESOPHAGEAL REFLUX DISEASE
     Dosage: 8ML/24 HOURS, 2 MG/ML ORAL SUS Q.S. 100 ML
     Route: 048
     Dates: start: 20190703, end: 20190715

REACTIONS (2)
  - Product formulation issue [Recovered/Resolved]
  - Hypertrichosis [Unknown]

NARRATIVE: CASE EVENT DATE: 20190703
